FAERS Safety Report 26085186 (Version 2)
Quarter: 2025Q4

REPORT INFORMATION
  Report Type: Report from Study
  Country: US (occurrence: US)
  Receive Date: 20251125
  Receipt Date: 20251202
  Transmission Date: 20260119
  Serious: Yes (Other)
  Sender: JOHNSON AND JOHNSON
  Company Number: US-JNJFOC-20251158526

PATIENT

DRUGS (2)
  1. TECLISTAMAB [Suspect]
     Active Substance: TECLISTAMAB
     Indication: Primary amyloidosis
     Route: 065
  2. TALQUETAMAB [Suspect]
     Active Substance: TALQUETAMAB
     Indication: Primary amyloidosis
     Route: 065

REACTIONS (8)
  - Thrombocytopenia [Unknown]
  - Neutropenia [Unknown]
  - Cytokine release syndrome [Unknown]
  - Immune effector cell-associated neurotoxicity syndrome [Unknown]
  - Bacterial infection [Unknown]
  - Viral infection [Unknown]
  - Anaemia [Unknown]
  - Off label use [Unknown]
